FAERS Safety Report 9525047 (Version 1)
Quarter: 2013Q3

REPORT INFORMATION
  Report Type: Spontaneous
  Country: FR (occurrence: FR)
  Receive Date: 20130916
  Receipt Date: 20130916
  Transmission Date: 20140515
  Serious: Yes (Hospitalization)
  Sender: FDA-Public Use
  Company Number: FR-BAYER-2013-107916

PATIENT
  Age: 64 Year
  Sex: Male

DRUGS (7)
  1. CIFLOX [Suspect]
     Dosage: UNK
     Dates: start: 20110510, end: 20110514
  2. TAZOCILLINE [Suspect]
     Dosage: UNK
     Dates: start: 20110510, end: 20110524
  3. TAZOCILLINE [Suspect]
     Dosage: UNK
     Dates: start: 20110531, end: 20110601
  4. PIPERACILLIN [Suspect]
     Dosage: UNK
     Dates: start: 20110601, end: 20110608
  5. AMIKLIN [Suspect]
     Dosage: UNK
     Dates: start: 20110531, end: 20110602
  6. FLUCONAZOLE [Suspect]
     Dosage: UNK
     Dates: start: 20110601, end: 20110615
  7. CASPOFUNGIN [Concomitant]

REACTIONS (1)
  - Toxic skin eruption [Recovered/Resolved]
